FAERS Safety Report 6870859-7 (Version None)
Quarter: 2010Q3

REPORT INFORMATION
  Report Type: 
  Country: None (occurrence: None)
  Receive Date: 20100723
  Receipt Date: 20100712
  Transmission Date: 20110219
  Serious: Yes (Hospitalization, Other)
  Sender: FDA-Public Use
  Company Number: PHHY2010FR45580

PATIENT
  Age: 38 Year
  Sex: Female

DRUGS (3)
  1. CYCLOSPORINE [Suspect]
     Indication: RENAL TRANSPLANT
  2. MYCOPHENOLATE MOFETIL [Suspect]
     Indication: RENAL TRANSPLANT
  3. THYMOGLOBULIN [Suspect]
     Indication: RENAL TRANSPLANT

REACTIONS (8)
  - ABDOMINAL PAIN [None]
  - APLASTIC ANAEMIA [None]
  - COUGH [None]
  - CYTOMEGALOVIRUS INFECTION [None]
  - DECREASED APPETITE [None]
  - LEUKOPENIA [None]
  - MICROSPORIDIA INFECTION [None]
  - PYREXIA [None]
